FAERS Safety Report 17635456 (Version 1)
Quarter: 2020Q2

REPORT INFORMATION
  Report Type: Spontaneous
  Country: SE (occurrence: SE)
  Receive Date: 20200407
  Receipt Date: 20200407
  Transmission Date: 20200713
  Serious: Yes (Other)
  Sender: FDA-Public Use
  Company Number: SE-TEVA-2020-SE-1220049

PATIENT
  Age: 74 Year
  Sex: Male

DRUGS (2)
  1. DULOXETINE. [Suspect]
     Active Substance: DULOXETINE
     Route: 065
  2. MIRTAZAPINE. [Suspect]
     Active Substance: MIRTAZAPINE
     Route: 065

REACTIONS (1)
  - Colitis microscopic [Unknown]
